FAERS Safety Report 7692990-9 (Version None)
Quarter: 2011Q3

REPORT INFORMATION
  Report Type: 
  Country: None (occurrence: None)
  Receive Date: 20110819
  Receipt Date: 20110804
  Transmission Date: 20111222
  Serious: No
  Sender: FDA-Public Use
  Company Number: US-B.I. PHARMACEUTICALS,INC./RIDGEFIELD-2011-BP-15728BP

PATIENT
  Sex: Female

DRUGS (9)
  1. SIMVASTATIN [Concomitant]
     Indication: BLOOD CHOLESTEROL INCREASED
     Dosage: 20 MG
     Route: 048
  2. DIOVAN HCT [Concomitant]
     Route: 048
  3. PRADAXA [Suspect]
     Dosage: 150 MG
     Route: 048
     Dates: start: 20110412
  4. SPIRONOLACTONE [Concomitant]
     Dosage: 25 MG
     Route: 048
  5. ALLOPURINOL [Concomitant]
     Indication: GOUT
     Route: 048
  6. LASIX [Concomitant]
     Dosage: 40 MG
     Route: 048
  7. ESTRACE [Concomitant]
     Dosage: 2 MG
     Route: 048
  8. PRADAXA [Suspect]
     Indication: ATRIAL FIBRILLATION
     Dosage: 300 MG
     Route: 048
     Dates: end: 20110412
  9. METFORMIN HCL [Concomitant]

REACTIONS (4)
  - BLOOD CREATININE INCREASED [None]
  - CONTUSION [None]
  - PROTHROMBIN TIME PROLONGED [None]
  - INTERNATIONAL NORMALISED RATIO INCREASED [None]
